FAERS Safety Report 8936159 (Version 1)
Quarter: 2012Q4

REPORT INFORMATION
  Report Type: 
  Country: US (occurrence: US)
  Receive Date: 20121130
  Receipt Date: 20121130
  Transmission Date: 20130627
  Serious: No
  Sender: FDA-Public Use
  Company Number: US-ABBOTT-12P-163-0980500-00

PATIENT
  Age: 68 Year
  Sex: Male

DRUGS (7)
  1. ANDROGEL [Suspect]
     Indication: BLOOD TESTOSTERONE DECREASED
     Dosage: 1 pump actuation per day
     Dates: start: 201207
  2. CLONAZEPAM [Concomitant]
     Indication: ANXIETY
  3. PROCARDIA [Concomitant]
     Indication: HYPERTENSION
  4. ATENELOL [Concomitant]
     Indication: HYPERTENSION
  5. HYDROCHLOROTHIAZIDE [Concomitant]
     Indication: HYPERTENSION
  6. LUNESTA [Concomitant]
     Indication: INSOMNIA
  7. PLAVIX [Concomitant]
     Indication: PRODUCT USED FOR UNKNOWN INDICATION

REACTIONS (2)
  - Anxiety [Not Recovered/Not Resolved]
  - Blood testosterone decreased [Not Recovered/Not Resolved]
